FAERS Safety Report 8499054-5 (Version None)
Quarter: 2012Q3

REPORT INFORMATION
  Report Type: 
  Country: None (occurrence: None)
  Receive Date: 20120710
  Receipt Date: 20120702
  Transmission Date: 20120928
  Serious: Yes (Hospitalization, Other)
  Sender: FDA-Public Use
  Company Number: US-009507513-1202USA03876

PATIENT

DRUGS (10)
  1. HORMONES (UNSPECIFIED) [Concomitant]
     Dates: start: 19970101
  2. CALCIUM (UNSPECIFIED) [Concomitant]
     Dosage: 1000-1500
  3. MAGNESIUM (UNSPECIFIED) [Concomitant]
     Dosage: UNK UNK, QD
  4. FOSAMAX [Suspect]
     Indication: OSTEOPOROSIS
     Dosage: 70 MG, UNK
     Route: 048
     Dates: start: 19971101, end: 20070401
  5. CALCIUM (UNSPECIFIED) [Concomitant]
     Indication: OSTEOPOROSIS
     Dosage: 30 MG, QD
  6. CHOLECALCIFEROL [Concomitant]
     Dosage: 5000 U, TIW
  7. HORMONES (UNSPECIFIED) [Concomitant]
     Dates: start: 19870601, end: 19980101
  8. VITAMIN D (UNSPECIFIED) [Concomitant]
     Indication: OSTEOPOROSIS
  9. MK-9278 [Concomitant]
     Dosage: 4 IU, TID
  10. THERAPY UNSPECIFIED [Concomitant]

REACTIONS (22)
  - TOOTH DISORDER [None]
  - SPINAL FRACTURE [None]
  - VITAMIN D DEFICIENCY [None]
  - ANXIETY [None]
  - POST-TRAUMATIC STRESS DISORDER [None]
  - BODY HEIGHT DECREASED [None]
  - LIMB ASYMMETRY [None]
  - MEMORY IMPAIRMENT [None]
  - WRIST FRACTURE [None]
  - THORACIC VERTEBRAL FRACTURE [None]
  - ULNA FRACTURE [None]
  - RIB FRACTURE [None]
  - SPINAL OSTEOARTHRITIS [None]
  - BONE LOSS [None]
  - BREAST CYST [None]
  - FALL [None]
  - FEMUR FRACTURE [None]
  - DEPRESSION [None]
  - KYPHOSIS [None]
  - SPINAL COMPRESSION FRACTURE [None]
  - GINGIVITIS [None]
  - PELVIC FRACTURE [None]
